FAERS Safety Report 13507098 (Version 2)
Quarter: 2017Q2

REPORT INFORMATION
  Report Type: Spontaneous
  Country: CO (occurrence: CO)
  Receive Date: 20170503
  Receipt Date: 20170629
  Transmission Date: 20170830
  Serious: Yes (Hospitalization, Other)
  Sender: FDA-Public Use
  Company Number: CO-AMGEN-COLSP2017065595

PATIENT
  Age: 64 Year
  Sex: Female
  Weight: 39 kg

DRUGS (1)
  1. ENBREL [Suspect]
     Active Substance: ETANERCEPT
     Indication: ANKYLOSING SPONDYLITIS
     Dosage: 50 MG, WEEKLY
     Route: 058
     Dates: start: 2014

REACTIONS (7)
  - Wound [Not Recovered/Not Resolved]
  - Fistula discharge [Not Recovered/Not Resolved]
  - Peritonitis [Unknown]
  - Appendicitis [Unknown]
  - Underweight [Not Recovered/Not Resolved]
  - Malaise [Not Recovered/Not Resolved]
  - Fistula [Not Recovered/Not Resolved]
